FAERS Safety Report 6280709-8 (Version None)
Quarter: 2009Q3

REPORT INFORMATION
  Report Type: 
  Country: None (occurrence: None)
  Receive Date: 20090724
  Receipt Date: 20081117
  Transmission Date: 20100115
  Serious: Yes (Hospitalization)
  Sender: FDA-Public Use
  Company Number: A0757779A

PATIENT
  Age: 61 Year
  Sex: Female
  Weight: 106.8 kg

DRUGS (5)
  1. AVANDIA [Suspect]
     Dosage: 2MG TWICE PER DAY
     Route: 048
     Dates: start: 20030101, end: 20070101
  2. LASIX [Concomitant]
  3. VICODIN [Concomitant]
  4. HYDROCODONE [Concomitant]
  5. AMITRIPTYLINE HCL [Concomitant]

REACTIONS (1)
  - CARDIAC FAILURE CONGESTIVE [None]
